FAERS Safety Report 5536018-5 (Version None)
Quarter: 2007Q4

REPORT INFORMATION
  Report Type: 
  Country: None (occurrence: None)
  Receive Date: 20071206
  Receipt Date: 20071122
  Transmission Date: 20080405
  Serious: Yes (Life-Threatening, Hospitalization)
  Sender: FDA-Public Use
  Company Number: AU-AMGEN-US250669

PATIENT
  Sex: Male
  Weight: 57.7 kg

DRUGS (18)
  1. PANITUMUMAB [Suspect]
     Indication: SQUAMOUS CELL CARCINOMA
     Route: 042
     Dates: start: 20070823
  2. PANITUMUMAB [Suspect]
     Route: 042
     Dates: start: 20071031
  3. CISPLATIN [Concomitant]
     Route: 065
  4. FLUOROURACIL [Concomitant]
     Route: 065
  5. EMEND [Concomitant]
     Route: 048
     Dates: start: 20070827, end: 20071103
  6. PANTOPRAZOLE SODIUM [Concomitant]
     Route: 048
     Dates: start: 20070826
  7. LACTULOSE [Concomitant]
     Route: 048
     Dates: start: 20070815, end: 20070919
  8. DOCUSATE [Concomitant]
     Route: 048
     Dates: start: 20070827, end: 20070919
  9. METOCLOPRAMIDE [Concomitant]
     Route: 042
     Dates: start: 20070824, end: 20070827
  10. TEMAZEPAM [Concomitant]
     Route: 048
     Dates: start: 20070825, end: 20070827
  11. TEMAZEPAM [Concomitant]
     Route: 048
     Dates: start: 20070915, end: 20070916
  12. CLEXANE [Concomitant]
     Route: 058
     Dates: start: 20070824, end: 20070828
  13. XYLOCAINE VISCOUS [Concomitant]
     Route: 048
     Dates: start: 20070827, end: 20070827
  14. LORAZEPAM [Concomitant]
     Route: 048
     Dates: start: 20070827
  15. PANADEINE [Concomitant]
     Route: 048
     Dates: start: 20070815
  16. MINOCYCLINE HCL [Concomitant]
     Route: 048
     Dates: start: 20070914, end: 20070915
  17. TIMENTIN [Concomitant]
     Route: 042
     Dates: start: 20070924, end: 20070928
  18. POTASSIUM CHLORIDE [Concomitant]
     Route: 048
     Dates: start: 20070925

REACTIONS (1)
  - HYPERSENSITIVITY [None]
